FAERS Safety Report 24647599 (Version 2)
Quarter: 2024Q4

REPORT INFORMATION
  Report Type: Spontaneous
  Country: US (occurrence: US)
  Receive Date: 20241121
  Receipt Date: 20241205
  Transmission Date: 20250115
  Serious: Yes (Other)
  Sender: BAYER HEALTHCARE PHARMACEUTICALS INC.
  Company Number: US-BAYER-2024A165808

PATIENT
  Age: 34 Year
  Sex: Male
  Weight: 174.6 kg

DRUGS (1)
  1. GADAVIST [Suspect]
     Active Substance: GADOBUTROL
     Indication: Central nervous system lesion
     Dosage: 10 ML, ONCE,LEFT HAND
     Route: 042
     Dates: start: 20241120, end: 20241120

REACTIONS (5)
  - Anaphylactic reaction [Recovering/Resolving]
  - Urticaria [None]
  - Dyspnoea [None]
  - Pruritus [None]
  - Throat tightness [None]

NARRATIVE: CASE EVENT DATE: 20241120
